FAERS Safety Report 9628711 (Version 1)
Quarter: 2013Q4

REPORT INFORMATION
  Report Type: Spontaneous
  Country: ZA (occurrence: ZA)
  Receive Date: 20131017
  Receipt Date: 20131017
  Transmission Date: 20140711
  Serious: Yes (Death, Other)
  Sender: FDA-Public Use
  Company Number: ZA-CELGENEUS-143-50794-13100808

PATIENT
  Sex: Male
  Weight: 51 kg

DRUGS (1)
  1. VIDAZA [Suspect]
     Indication: MYELODYSPLASTIC SYNDROME
     Route: 065
     Dates: start: 20130610, end: 20130617

REACTIONS (2)
  - Neutropenic sepsis [Fatal]
  - Febrile neutropenia [Unknown]
